FAERS Safety Report 5814014-8 (Version None)
Quarter: 2008Q3

REPORT INFORMATION
  Report Type: 
  Country: None (occurrence: None)
  Receive Date: 20080715
  Receipt Date: 20080630
  Transmission Date: 20090109
  Serious: Yes (Hospitalization)
  Sender: FDA-Public Use
  Company Number: 14661

PATIENT
  Age: 42 Year
  Sex: Female

DRUGS (8)
  1. MORPHINE SULFATE [Suspect]
     Indication: PROCEDURAL PAIN
     Dosage: 120 MG BID ORALLY
     Route: 048
     Dates: start: 20080501, end: 20080601
  2. IBUPROFEN TABLETS [Concomitant]
  3. METFORMIN [Concomitant]
  4. LIPITOR [Concomitant]
  5. SYNTHROID [Concomitant]
  6. ANTACID TAB [Concomitant]
  7. DICYCLOMINE [Concomitant]
  8. ONDANSETRON [Concomitant]

REACTIONS (12)
  - ABDOMINAL PAIN UPPER [None]
  - ABNORMAL FAECES [None]
  - CONSTIPATION [None]
  - DEHYDRATION [None]
  - DIARRHOEA [None]
  - DIZZINESS [None]
  - DRUG INEFFECTIVE [None]
  - DYSPNOEA [None]
  - GASTROOESOPHAGEAL REFLUX DISEASE [None]
  - HAEMATOCHEZIA [None]
  - NAUSEA [None]
  - PHARMACEUTICAL PRODUCT COMPLAINT [None]
